FAERS Safety Report 6534308-0 (Version None)
Quarter: 2010Q1

REPORT INFORMATION
  Report Type: 
  Country: None (occurrence: None)
  Receive Date: 20100112
  Receipt Date: 20100104
  Transmission Date: 20100710
  Serious: No
  Sender: FDA-Public Use
  Company Number: US-BAYER-201010156NA

PATIENT
  Sex: Female

DRUGS (3)
  1. MIRENA [Suspect]
     Indication: DRUG USE FOR UNKNOWN INDICATION
     Dosage: CONTINUOUS DELIVERY
     Route: 015
     Dates: start: 20030101, end: 20081201
  2. MIRENA [Suspect]
     Dosage: CONTINUOUS DELIVERY
     Route: 015
     Dates: start: 20081201, end: 20090901
  3. MIRENA [Suspect]
     Dosage: CONTINUOUS DELIVERY
     Route: 015
     Dates: start: 20090901, end: 20091201

REACTIONS (3)
  - ABDOMINAL PAIN [None]
  - UNEVALUABLE EVENT [None]
  - VAGINAL HAEMORRHAGE [None]
